FAERS Safety Report 16683545 (Version 1)
Quarter: 2019Q3

REPORT INFORMATION
  Report Type: Spontaneous
  Country: US (occurrence: US)
  Receive Date: 20190808
  Receipt Date: 20190808
  Transmission Date: 20191004
  Serious: No
  Sender: FDA-Public Use
  Company Number: US-ALLERGAN-1905276US

PATIENT
  Sex: Male

DRUGS (2)
  1. ANTI DEPRESSANTS [Concomitant]
     Active Substance: UNSPECIFIED INGREDIENT
     Indication: DEPRESSION
  2. ANDRODERM [Suspect]
     Active Substance: TESTOSTERONE
     Indication: BLOOD TESTOSTERONE DECREASED
     Dosage: 4 MG, QD
     Route: 062
     Dates: start: 201901, end: 201901

REACTIONS (3)
  - Poor quality product administered [Unknown]
  - Product adhesion issue [Unknown]
  - Drug ineffective [Unknown]
